FAERS Safety Report 5822523-0 (Version None)
Quarter: 2008Q3

REPORT INFORMATION
  Report Type: 
  Country: None (occurrence: None)
  Receive Date: 20080725
  Receipt Date: 20071121
  Transmission Date: 20090109
  Serious: No
  Sender: FDA-Public Use
  Company Number: US-AMGEN-KDL253923

PATIENT
  Sex: Male

DRUGS (14)
  1. PROCRIT [Suspect]
     Indication: PRE-EXISTING DISEASE
     Dates: start: 20071001, end: 20071015
  2. GLYBURIDE [Concomitant]
  3. FLOMAX [Concomitant]
  4. LISINOPRIL [Concomitant]
  5. METOPROLOL TARTRATE [Concomitant]
  6. METFORMIN HCL [Concomitant]
  7. OMEPRAZOLE [Concomitant]
  8. GEMFIBROZIL [Concomitant]
  9. HYDROCHLOROTHIAZIDE [Concomitant]
  10. WARFARIN SODIUM [Concomitant]
  11. DIGOXIN [Concomitant]
  12. FELODIPINE [Concomitant]
  13. CITALOPRAM HYDROBROMIDE [Concomitant]
  14. ALLOPURINOL [Concomitant]

REACTIONS (1)
  - RECTAL HAEMORRHAGE [None]
